FAERS Safety Report 7963639-2 (Version None)
Quarter: 2011Q4

REPORT INFORMATION
  Report Type: 
  Country: None (occurrence: None)
  Receive Date: 20111208
  Receipt Date: 20111128
  Transmission Date: 20120403
  Serious: Yes (Hospitalization, Other)
  Sender: FDA-Public Use
  Company Number: US-BAYER-2011-040249

PATIENT
  Age: 17 Year
  Sex: Female
  Weight: 59.864 kg

DRUGS (4)
  1. YAZ [Suspect]
     Indication: ACNE
  2. DIFFERIN [Concomitant]
     Indication: ACNE
     Dosage: UNK
     Dates: start: 20080322, end: 20080401
  3. YAZ [Suspect]
     Indication: CONTRACEPTION
     Dosage: UNK
     Dates: start: 20060101, end: 20091201
  4. YAZ [Suspect]
     Indication: MENSTRUATION IRREGULAR

REACTIONS (5)
  - CHOLECYSTITIS CHRONIC [None]
  - PAIN [None]
  - BILIARY DYSKINESIA [None]
  - GALLBLADDER INJURY [None]
  - ABDOMINAL PAIN [None]
